FAERS Safety Report 4519901-9 (Version None)
Quarter: 2004Q4

REPORT INFORMATION
  Report Type: 
  Country: None (occurrence: None)
  Receive Date: 20041207
  Receipt Date: 20041126
  Transmission Date: 20050328
  Serious: Yes (Hospitalization)
  Sender: FDA-Public Use
  Company Number: PHRM2004FR03474

PATIENT
  Age: 93 Year
  Sex: Female

DRUGS (10)
  1. TARDYFERON [Concomitant]
     Dosage: 1 DF, BID
     Route: 048
     Dates: end: 20041107
  2. KARDEGIC /FRA/ [Concomitant]
     Dosage: 1 DF, QD
     Route: 048
  3. CALCIPARINE [Concomitant]
     Route: 058
  4. LASILIX [Suspect]
     Dosage: 20 MG, QD
     Route: 048
  5. SEROPRAM [Suspect]
     Dosage: 20 MG, QD
     Route: 048
     Dates: start: 20041001, end: 20041106
  6. TEMESTA [Concomitant]
     Route: 048
     Dates: end: 20041106
  7. IMOVANE [Concomitant]
     Route: 048
     Dates: end: 20041106
  8. MONICOR L.P. [Concomitant]
     Route: 048
     Dates: end: 20041106
  9. VASTAREL ^BIOPHARMA^ [Concomitant]
     Dosage: 35 MG, BID
     Route: 048
     Dates: end: 20041107
  10. TEGRETOL [Suspect]
     Dosage: 600 MG/DAY
     Route: 048
     Dates: start: 20041016, end: 20041107

REACTIONS (11)
  - ACUTE PULMONARY OEDEMA [None]
  - BLOOD CHLORIDE DECREASED [None]
  - CARDIAC MURMUR [None]
  - CARDIOMEGALY [None]
  - DISORIENTATION [None]
  - DISTURBANCE IN ATTENTION [None]
  - DRUG INTERACTION [None]
  - ELECTROCARDIOGRAM ST SEGMENT ABNORMAL [None]
  - HAEMOGLOBIN DECREASED [None]
  - HYPONATRAEMIA [None]
  - LUNG CREPITATION [None]
